FAERS Safety Report 25388243 (Version 1)
Quarter: 2025Q2

REPORT INFORMATION
  Report Type: Spontaneous
  Country: CA (occurrence: CA)
  Receive Date: 20250603
  Receipt Date: 20250603
  Transmission Date: 20250717
  Serious: Yes (Death, Life-Threatening)
  Sender: ACCORD
  Company Number: CA-MLMSERVICE-20250516-PI509318-00059-1

PATIENT
  Age: 79 Year
  Sex: Male

DRUGS (15)
  1. METHOTREXATE [Suspect]
     Active Substance: METHOTREXATE
     Indication: Polymyalgia rheumatica
     Dosage: UP TO 25MG
     Route: 058
     Dates: start: 2021, end: 2023
  2. MYCOPHENOLATE MOFETIL [Suspect]
     Active Substance: MYCOPHENOLATE MOFETIL
     Indication: Polymyalgia rheumatica
     Dates: start: 2021, end: 2023
  3. CYCLOSPORINE [Suspect]
     Active Substance: CYCLOSPORINE
     Indication: Polymyalgia rheumatica
     Dates: start: 2021, end: 2023
  4. TOFACITINIB [Suspect]
     Active Substance: TOFACITINIB
     Indication: Polymyalgia rheumatica
     Dates: start: 2021, end: 2023
  5. SARILUMAB [Suspect]
     Active Substance: SARILUMAB
     Indication: Polymyalgia rheumatica
     Route: 058
     Dates: start: 2021, end: 2023
  6. PREDNISONE [Suspect]
     Active Substance: PREDNISONE
     Indication: Polymyalgia rheumatica
     Dosage: HIGH DOSE, APPROX
     Dates: start: 2021
  7. AZATHIOPRINE [Suspect]
     Active Substance: AZATHIOPRINE
     Indication: Polymyalgia rheumatica
     Dates: start: 2021, end: 2023
  8. CYCLOSPORINE [Suspect]
     Active Substance: CYCLOSPORINE
     Indication: Autoinflammatory disease
     Dates: start: 2021, end: 2023
  9. TOFACITINIB [Suspect]
     Active Substance: TOFACITINIB
     Indication: Autoinflammatory disease
     Dates: start: 2021, end: 2023
  10. SARILUMAB [Suspect]
     Active Substance: SARILUMAB
     Indication: Autoinflammatory disease
     Route: 058
     Dates: start: 2021, end: 2023
  11. MYCOPHENOLATE MOFETIL [Suspect]
     Active Substance: MYCOPHENOLATE MOFETIL
     Indication: Autoinflammatory disease
     Dates: start: 2021, end: 2023
  12. PREDNISONE [Suspect]
     Active Substance: PREDNISONE
     Indication: Polymyalgia rheumatica
     Dosage: TAPERED TO 15MG/D OR LOWER
     Dates: end: 2023
  13. PREDNISONE [Suspect]
     Active Substance: PREDNISONE
     Indication: Autoinflammatory disease
     Dosage: HIGH DOSE, APPROX
     Dates: start: 2021
  14. METHOTREXATE [Suspect]
     Active Substance: METHOTREXATE
     Indication: Autoinflammatory disease
     Dosage: UP TO 25MG
     Route: 058
     Dates: start: 2021, end: 2023
  15. AZATHIOPRINE [Suspect]
     Active Substance: AZATHIOPRINE
     Indication: Autoinflammatory disease
     Dates: start: 2021, end: 2023

REACTIONS (5)
  - COVID-19 pneumonia [Fatal]
  - Pneumonia [Fatal]
  - Mycobacterium chelonae infection [Fatal]
  - Bacteraemia [Fatal]
  - Off label use [Unknown]
